FAERS Safety Report 19776462 (Version 1)
Quarter: 2021Q3

REPORT INFORMATION
  Report Type: Spontaneous
  Country: PT (occurrence: PT)
  Receive Date: 20210902
  Receipt Date: 20210902
  Transmission Date: 20211014
  Serious: Yes (Other)
  Sender: FDA-Public Use
  Company Number: PT-BAUSCH-BL-2021-028625

PATIENT
  Age: 19 Year
  Sex: Male

DRUGS (8)
  1. PLASTIC APPLICATOR WITH A FLEXIBLE, MOLDED TIP [Suspect]
     Active Substance: DEVICE
     Indication: MYOCLONUS
     Route: 065
  2. DIAZEPAM. [Suspect]
     Active Substance: DIAZEPAM
     Indication: MYOCLONUS
     Route: 065
  3. MORPHINE SULFATE. [Suspect]
     Active Substance: MORPHINE SULFATE
     Indication: PROCTALGIA
     Route: 065
  4. PROPOFOL. [Suspect]
     Active Substance: PROPOFOL
     Indication: MYOCLONUS
     Route: 065
  5. MIDAZOLAM. [Suspect]
     Active Substance: MIDAZOLAM
     Indication: MYOCLONUS
     Route: 065
  6. LEVETIRACETAM. [Suspect]
     Active Substance: LEVETIRACETAM
     Indication: MYOCLONUS
     Route: 065
  7. PROPOFOL. [Suspect]
     Active Substance: PROPOFOL
     Indication: PROCTALGIA
     Route: 065
  8. VALPROATE [Suspect]
     Active Substance: VALPROIC ACID
     Indication: MYOCLONUS
     Route: 065

REACTIONS (3)
  - Dyskinesia [Recovered/Resolved]
  - Electroencephalogram abnormal [Recovered/Resolved]
  - Drug ineffective [Recovered/Resolved]
